FAERS Safety Report 5992491-X (Version None)
Quarter: 2008Q4

REPORT INFORMATION
  Report Type: 
  Country: None (occurrence: None)
  Receive Date: 20081202
  Receipt Date: 20071105
  Transmission Date: 20090506
  Serious: Yes (Other)
  Sender: FDA-Public Use
  Company Number: WAES 0708USA04342

PATIENT
  Age: 66 Year
  Sex: Female
  Weight: 60.3284 kg

DRUGS (11)
  1. FOSAMAX [Suspect]
     Indication: OSTEOPOROSIS POSTMENOPAUSAL
     Dosage: 10 MG/DAILY/PO : 10 MG/QOD/PO : 10 MG/DAILY/PO : 40 MG/WKY/PO : 70 MG/WKY/PO
     Route: 048
     Dates: start: 20010206, end: 20061101
  2. FOSAMAX [Suspect]
     Indication: OSTEOPOROSIS POSTMENOPAUSAL
     Dosage: 10 MG/DAILY/PO : 10 MG/QOD/PO : 10 MG/DAILY/PO : 40 MG/WKY/PO : 70 MG/WKY/PO
     Route: 048
     Dates: start: 19960201
  3. FOSAMAX [Suspect]
     Indication: OSTEOPOROSIS POSTMENOPAUSAL
     Dosage: 10 MG/DAILY/PO : 10 MG/QOD/PO : 10 MG/DAILY/PO : 40 MG/WKY/PO : 70 MG/WKY/PO
     Route: 048
     Dates: start: 19990524
  4. FOSAMAX [Suspect]
     Indication: OSTEOPOROSIS POSTMENOPAUSAL
     Dosage: 10 MG/DAILY/PO : 10 MG/QOD/PO : 10 MG/DAILY/PO : 40 MG/WKY/PO : 70 MG/WKY/PO
     Route: 048
     Dates: start: 19990607
  5. FOSAMAX [Suspect]
     Indication: OSTEOPOROSIS POSTMENOPAUSAL
     Dosage: 10 MG/DAILY/PO : 10 MG/QOD/PO : 10 MG/DAILY/PO : 40 MG/WKY/PO : 70 MG/WKY/PO
     Route: 048
     Dates: start: 20000101
  6. FLEXERIL [Concomitant]
  7. PULMICORT-100 [Concomitant]
  8. VISTARIL [Concomitant]
  9. ZYRTEC [Concomitant]
  10. CLONAZEPAM [Concomitant]
  11. LEVOTHYROXINE SODIUM [Concomitant]

REACTIONS (37)
  - ALOPECIA [None]
  - ANGIOPATHY [None]
  - ASTHMA [None]
  - BACK PAIN [None]
  - BLADDER DISORDER [None]
  - BRUXISM [None]
  - CATARACT [None]
  - CHEST DISCOMFORT [None]
  - CONCUSSION [None]
  - CONTUSION [None]
  - DENTAL CARIES [None]
  - DEPRESSION [None]
  - DIZZINESS [None]
  - DRUG ADMINISTRATION ERROR [None]
  - DRY MOUTH [None]
  - DYSPEPSIA [None]
  - EAR PAIN [None]
  - FAILURE OF IMPLANT [None]
  - FALL [None]
  - FIBROMA [None]
  - GINGIVITIS [None]
  - HEADACHE [None]
  - INCREASED TENDENCY TO BRUISE [None]
  - MALOCCLUSION [None]
  - MIGRAINE [None]
  - NECK PAIN [None]
  - NEURALGIA [None]
  - ORAL FIBROMA [None]
  - ORAL TORUS [None]
  - OSTEONECROSIS [None]
  - PLANTAR FASCIITIS [None]
  - POST CONCUSSION SYNDROME [None]
  - SINUSITIS [None]
  - SYNCOPE [None]
  - TOOTH FRACTURE [None]
  - TRANSIENT ISCHAEMIC ATTACK [None]
  - VIRAL INFECTION [None]
